FAERS Safety Report 8586054-X (Version None)
Quarter: 2012Q3

REPORT INFORMATION
  Report Type: 
  Country: None (occurrence: None)
  Receive Date: 20120810
  Receipt Date: 20120801
  Transmission Date: 20120928
  Serious: Yes (Hospitalization, Other)
  Sender: FDA-Public Use
  Company Number: US-009507513-1204USA00886

PATIENT

DRUGS (6)
  1. BELLERGAL-S TABLETS [Concomitant]
     Indication: MENOPAUSAL SYMPTOMS
  2. FOSAMAX [Suspect]
     Indication: OSTEOPOROSIS
     Dosage: 10 MG, QD
     Route: 048
     Dates: start: 20000428, end: 20031007
  3. FOSAMAX [Suspect]
     Dosage: 70 MG, QW
     Route: 048
     Dates: start: 20031007, end: 20051007
  4. FOSAMAX PLUS D [Suspect]
     Indication: OSTEOPOROSIS
     Dosage: 70 MG, QW
     Route: 048
     Dates: end: 20110319
  5. FOSAMAX [Suspect]
     Dosage: UNK UNK, QW
  6. CALCIUM (UNSPECIFIED) [Concomitant]
     Indication: OSTEOPOROSIS
     Dosage: 1500 MG, QD

REACTIONS (33)
  - HYPERLIPIDAEMIA [None]
  - LABYRINTHITIS [None]
  - ANXIETY [None]
  - WHEEZING [None]
  - TOOTH DISORDER [None]
  - VITAMIN D DEFICIENCY [None]
  - HAEMATURIA [None]
  - FEELING ABNORMAL [None]
  - HYPERTENSION [None]
  - ANAEMIA [None]
  - DRUG INEFFECTIVE [None]
  - BACK PAIN [None]
  - GASTROOESOPHAGEAL REFLUX DISEASE [None]
  - FEMUR FRACTURE [None]
  - LOW TURNOVER OSTEOPATHY [None]
  - OSTEOARTHRITIS [None]
  - DEPRESSION [None]
  - REPETITIVE STRAIN INJURY [None]
  - SPINAL PAIN [None]
  - MUSCULOSKELETAL CHEST PAIN [None]
  - MELANOCYTIC NAEVUS [None]
  - LIGAMENT SPRAIN [None]
  - GASTRITIS [None]
  - ACUTE STRESS DISORDER [None]
  - CARDIOMEGALY [None]
  - MUSCLE STRAIN [None]
  - FAMILY STRESS [None]
  - RASH [None]
  - SINUSITIS [None]
  - PULMONARY HYPERTENSION [None]
  - ANAEMIA POSTOPERATIVE [None]
  - PALPITATIONS [None]
  - BREAST PAIN [None]
